FAERS Safety Report 23208253 (Version 1)
Quarter: 2023Q4

REPORT INFORMATION
  Report Type: Report from Study
  Country: GB (occurrence: GB)
  Receive Date: 20231121
  Receipt Date: 20231121
  Transmission Date: 20240109
  Serious: Yes (Other)
  Sender: FDA-Public Use
  Company Number: GB-UCBSA-2023043261

PATIENT
  Sex: Female
  Weight: 95.5 kg

DRUGS (15)
  1. BIMEKIZUMAB [Suspect]
     Active Substance: BIMEKIZUMAB
     Indication: Psoriasis
     Dosage: 320 MILLIGRAM, EV 4 WEEKS
     Route: 058
     Dates: start: 20230503, end: 2023
  2. BIMEKIZUMAB [Suspect]
     Active Substance: BIMEKIZUMAB
     Dosage: 320 MILLIGRAM, EV 8 WEEKS
     Route: 058
     Dates: start: 2023
  3. HYDROXOCOBALAMIN [Concomitant]
     Active Substance: HYDROXOCOBALAMIN
     Indication: Neuropathy peripheral
     Dosage: 1 MILLIGRAM, EV 4 WEEKS
     Route: 030
     Dates: start: 20170627
  4. PRAMIPEXOLE [Concomitant]
     Active Substance: PRAMIPEXOLE
     Indication: Neuropathy peripheral
     Dosage: 700 MICROGRAM, ONCE DAILY (QD) AT NOCTE
     Route: 048
     Dates: start: 20221031
  5. BACLOFEN [Concomitant]
     Active Substance: BACLOFEN
     Indication: Neuropathy peripheral
     Dosage: 20 MILLIGRAM, ONCE DAILY (QD) AT NOCTE
     Route: 048
     Dates: start: 20230522
  6. GABAPENTIN [Concomitant]
     Active Substance: GABAPENTIN
     Indication: Neuropathy peripheral
     Dosage: 900 MILLIGRAM, 3X/DAY (TID)
     Route: 048
     Dates: start: 20170627
  7. FOLIC ACID [Concomitant]
     Active Substance: FOLIC ACID
     Indication: Neuropathy peripheral
     Dosage: 5 MILLIGRAM, ONCE DAILY (QD)
     Route: 048
     Dates: start: 20170727
  8. FOLIC ACID\IRON\MINERALS\VITAMINS [Concomitant]
     Active Substance: FOLIC ACID\IRON\MINERALS\VITAMINS
     Indication: Neuropathy peripheral
     Dosage: 1 ONCE DAILY
     Route: 048
     Dates: start: 20170313
  9. COCODAMOL [Concomitant]
     Active Substance: ACETAMINOPHEN\CODEINE PHOSPHATE
     Indication: Neuropathy peripheral
     Dosage: 60/1000 MILLIGRAM, 4X/DAY (QID)
     Route: 048
     Dates: start: 20170727
  10. AMITRIPTYLINE [Concomitant]
     Active Substance: AMITRIPTYLINE
     Indication: Neuropathy peripheral
     Dosage: 20 MILLIGRAM, AT NOCTE
     Route: 048
     Dates: start: 20170727
  11. CYCLIZINE [Concomitant]
     Active Substance: CYCLIZINE
     Indication: Nausea
     Dosage: 50 MILLIGRAM, 3X/DAY (TID)
     Route: 048
     Dates: start: 20210907
  12. APREMILAST [Concomitant]
     Active Substance: APREMILAST
     Indication: Psoriasis
     Dosage: 30 MILLIGRAM, 2X/DAY (BID)
     Route: 048
     Dates: start: 20210913, end: 20230427
  13. ROPINIROLE [Concomitant]
     Active Substance: ROPINIROLE
     Indication: Neuropathy peripheral
     Dosage: 250 MICROGRAM, AT NOCTE
     Route: 048
     Dates: start: 20230417, end: 20230521
  14. SPIKEVAX (ELASOMERAN) [Concomitant]
     Active Substance: ELASOMERAN
     Indication: COVID-19 prophylaxis
     Dosage: 0.1 MILLIGRAM
     Route: 048
     Dates: start: 20231110, end: 20231110
  15. INFLUENZA VIRUS VACCINE [Concomitant]
     Active Substance: INFLUENZA VIRUS VACCINE
     Indication: Antiviral prophylaxis
     Dosage: 0.5 MILLILITER
     Route: 048
     Dates: start: 20231110, end: 20231110

REACTIONS (6)
  - Alopecia [Not Recovered/Not Resolved]
  - Onycholysis [Recovered/Resolved]
  - Blood alkaline phosphatase increased [Not Recovered/Not Resolved]
  - Blood bilirubin increased [Not Recovered/Not Resolved]
  - Gamma-glutamyltransferase increased [Not Recovered/Not Resolved]
  - Ear pain [Recovered/Resolved]

NARRATIVE: CASE EVENT DATE: 20230717
